FAERS Safety Report 4301689-8 (Version None)
Quarter: 2004Q1

REPORT INFORMATION
  Report Type: 
  Country: None (occurrence: None)
  Receive Date: 20040218
  Receipt Date: 20031111
  Transmission Date: 20041129
  Serious: Yes (Other)
  Sender: FDA-Public Use
  Company Number: 2003-11-0789

PATIENT
  Age: 52 Year
  Sex: Female
  Weight: 77.1115 kg

DRUGS (4)
  1. PEG-INTRON [Suspect]
     Indication: HEPATITIS C
     Dosage: 150 MCG QW SUBCUTANEOUS
     Route: 058
     Dates: start: 20030320, end: 20031201
  2. REBETOL [Suspect]
     Indication: HEPATITIS C
     Dosage: 1000 MG QD ORAL
     Route: 048
     Dates: start: 20030320, end: 20031201
  3. AMBIEN [Concomitant]
  4. PREMARIN [Concomitant]

REACTIONS (4)
  - ANGER [None]
  - DEPRESSION [None]
  - IRRITABILITY [None]
  - SUICIDAL IDEATION [None]
